FAERS Safety Report 20865339 (Version 2)
Quarter: 2022Q2

REPORT INFORMATION
  Report Type: Spontaneous
  Country: US (occurrence: US)
  Receive Date: 20220524
  Receipt Date: 20220530
  Transmission Date: 20220721
  Serious: No
  Sender: FDA-Public Use
  Company Number: US-GSKCCFUS-Case-01380309_AE-79760

PATIENT
  Sex: Male

DRUGS (1)
  1. NUCALA [Suspect]
     Active Substance: MEPOLIZUMAB
     Indication: Nasal polyps
     Dosage: 100 MG, Z, ONCE MONTHLY
     Route: 058
     Dates: start: 202202

REACTIONS (8)
  - Arthralgia [Not Recovered/Not Resolved]
  - Pain in extremity [Unknown]
  - Joint swelling [Not Recovered/Not Resolved]
  - Gait inability [Unknown]
  - Pain [Unknown]
  - Gouty arthritis [Unknown]
  - Peripheral swelling [Unknown]
  - White blood cell count decreased [Unknown]
